FAERS Safety Report 4358701-X (Version None)
Quarter: 2004Q2

REPORT INFORMATION
  Report Type: 
  Country: None (occurrence: None)
  Receive Date: 20040511
  Receipt Date: 20040428
  Transmission Date: 20050107
  Serious: Yes (Other)
  Sender: FDA-Public Use
  Company Number: 2004028820

PATIENT
  Age: 77 Year
  Sex: Female

DRUGS (3)
  1. DILANTIN KAPSEAL [Suspect]
     Indication: CONVULSION
     Dosage: 300 MG 1 IN 1 D, ORAL
     Route: 048
     Dates: start: 20000101
  2. DONEPEZIL HCL [Suspect]
     Indication: ILL-DEFINED DISORDER
     Dates: start: 20040301, end: 20040401
  3. FLUVASTATIN (FLUVASTATIN) [Concomitant]

REACTIONS (3)
  - DIZZINESS [None]
  - FATIGUE [None]
  - TRANSIENT ISCHAEMIC ATTACK [None]
